FAERS Safety Report 20691740 (Version 5)
Quarter: 2022Q2

REPORT INFORMATION
  Report Type: Report from Study
  Country: ES (occurrence: None)
  Receive Date: 20220408
  Receipt Date: 20220504
  Transmission Date: 20220721
  Serious: Yes (Hospitalization)
  Sender: FDA-Public Use
  Company Number: ES-ROCHE-3060804

PATIENT
  Age: 60 Year
  Sex: Male
  Weight: 67 kg

DRUGS (33)
  1. OCRELIZUMAB [Suspect]
     Active Substance: OCRELIZUMAB
     Indication: Primary progressive multiple sclerosis
     Dosage: TWO INFUSIONS OF BLINDED OCRELIZUMAB SEPARATED BY 14 DAYS IN EACH TREATMENT CYCLE OF 24 WEEKS (AS PE
     Route: 042
     Dates: start: 20120229, end: 20151123
  2. OCRELIZUMAB [Suspect]
     Active Substance: OCRELIZUMAB
     Indication: Primary progressive multiple sclerosis
     Dosage: SUBSEQUENT DOSE ON 10/MAY/2016, 23/MAY/2016, 25/OCT/2016, 11/APR/2017, 25/SEP/2017, 13/MAR/2018, 30/
     Route: 042
     Dates: start: 20151124
  3. HYALURONIC ACID [Concomitant]
     Active Substance: HYALURONIC ACID
     Indication: Aphthous ulcer
     Route: 065
     Dates: start: 20180604
  4. AMBROXOL [Concomitant]
     Active Substance: AMBROXOL
     Indication: Respiratory tract infection
     Route: 065
     Dates: start: 20190125, end: 20190131
  5. CEFUROXIME [Concomitant]
     Active Substance: CEFUROXIME
     Route: 065
     Dates: start: 20210426, end: 20210430
  6. CHLORHEXIDINE [Concomitant]
     Active Substance: CHLORHEXIDINE
     Indication: Aphthous ulcer
     Route: 065
     Dates: start: 20180604
  7. DEXAMETHASONE [Concomitant]
     Active Substance: DEXAMETHASONE
     Indication: COVID-19 pneumonia
     Route: 065
     Dates: start: 20220202, end: 20220209
  8. DEXAMETHASONE [Concomitant]
     Active Substance: DEXAMETHASONE
     Route: 065
     Dates: start: 20220210, end: 20220214
  9. DEXAMETHASONE [Concomitant]
     Active Substance: DEXAMETHASONE
     Route: 065
     Dates: start: 20220215, end: 20220225
  10. DEXKETOPROFEN [Concomitant]
     Active Substance: DEXKETOPROFEN
     Route: 065
     Dates: start: 20210430, end: 20210510
  11. DEZACORT [Concomitant]
     Indication: Respiratory tract infection
     Route: 065
     Dates: start: 20190125, end: 20190201
  12. ENOXAPARIN SODIUM [Concomitant]
     Active Substance: ENOXAPARIN SODIUM
     Indication: COVID-19 pneumonia
     Route: 065
     Dates: start: 20220202, end: 20220209
  13. ESPIRAMICINA [Concomitant]
     Indication: Aphthous ulcer
     Route: 065
     Dates: start: 20180521, end: 20180528
  14. IBUPROFEN [Concomitant]
     Active Substance: IBUPROFEN
     Indication: Respiratory tract infection
     Route: 065
     Dates: start: 20180907, end: 20180917
  15. LEVOFLOXACIN [Concomitant]
     Active Substance: LEVOFLOXACIN
     Indication: COVID-19 pneumonia
     Route: 065
     Dates: start: 20220203, end: 20220209
  16. LEVOFLOXACIN [Concomitant]
     Active Substance: LEVOFLOXACIN
     Indication: Respiratory tract infection
     Route: 065
     Dates: start: 20190125, end: 20190202
  17. LIDOCAINE [Concomitant]
     Active Substance: LIDOCAINE
     Indication: Aphthous ulcer
     Route: 065
     Dates: start: 20210519
  18. METAMIZOLE [Concomitant]
     Active Substance: METAMIZOLE
     Indication: Nephrolithiasis
     Route: 065
     Dates: start: 20180301, end: 20180303
  19. METAMIZOLE [Concomitant]
     Active Substance: METAMIZOLE
     Route: 065
     Dates: start: 20210430, end: 20210510
  20. METHYLPREDNISOLONE [Concomitant]
     Active Substance: METHYLPREDNISOLONE
     Indication: Multiple sclerosis relapse
     Route: 065
     Dates: start: 20180918, end: 20180922
  21. METHYLPREDNISOLONE [Concomitant]
     Active Substance: METHYLPREDNISOLONE
     Route: 065
     Dates: start: 20130802, end: 20200630
  22. NYSTATIN [Concomitant]
     Active Substance: NYSTATIN
     Indication: Aphthous ulcer
     Route: 065
     Dates: start: 20210519
  23. OMEPRAZOLE [Concomitant]
     Active Substance: OMEPRAZOLE
     Indication: Multiple sclerosis relapse
     Route: 065
     Dates: start: 20180918, end: 20181003
  24. ACETAMINOPHEN [Concomitant]
     Active Substance: ACETAMINOPHEN
     Indication: Nephrolithiasis
     Route: 065
     Dates: start: 20180301, end: 20180303
  25. ACETAMINOPHEN [Concomitant]
     Active Substance: ACETAMINOPHEN
     Indication: Respiratory tract infection
     Route: 065
     Dates: start: 20180907, end: 20180917
  26. ACETAMINOPHEN [Concomitant]
     Active Substance: ACETAMINOPHEN
     Indication: Nasopharyngitis
     Route: 065
     Dates: start: 20201116, end: 20201116
  27. ACETAMINOPHEN [Concomitant]
     Active Substance: ACETAMINOPHEN
     Indication: Aphthous ulcer
     Route: 065
     Dates: start: 20180521, end: 20180528
  28. ACETAMINOPHEN [Concomitant]
     Active Substance: ACETAMINOPHEN
     Route: 065
     Dates: start: 20210603
  29. ACETAMINOPHEN [Concomitant]
     Active Substance: ACETAMINOPHEN
     Route: 065
     Dates: start: 20130802
  30. PREDNISONE [Concomitant]
     Active Substance: PREDNISONE
     Indication: Multiple sclerosis relapse
     Dates: start: 20180923, end: 20181003
  31. TRIAMCINOLONE [Concomitant]
     Active Substance: TRIAMCINOLONE
     Indication: Aphthous ulcer
     Route: 065
     Dates: start: 20210519
  32. DEXCHLORPHENIRAMINE [Concomitant]
     Active Substance: DEXCHLORPHENIRAMINE
     Route: 065
     Dates: start: 20120314, end: 20150520
  33. POLARAMINE [Concomitant]
     Active Substance: DEXCHLORPHENIRAMINE MALEATE
     Route: 065
     Dates: start: 20190725, end: 20200630

REACTIONS (1)
  - Aphthous ulcer [Recovered/Resolved]

NARRATIVE: CASE EVENT DATE: 20220316
